FAERS Safety Report 16344470 (Version 4)
Quarter: 2019Q2

REPORT INFORMATION
  Report Type: Spontaneous
  Country: US (occurrence: US)
  Receive Date: 20190522
  Receipt Date: 20190531
  Transmission Date: 20190711
  Serious: Yes (Hospitalization)
  Sender: FDA-Public Use
  Company Number: US-CELGENEUS-USA-20190507327

PATIENT
  Sex: Female

DRUGS (2)
  1. POMALYST [Suspect]
     Active Substance: POMALIDOMIDE
     Dosage: 2 MILLIGRAM
     Route: 048
     Dates: start: 20190513
  2. POMALYST [Suspect]
     Active Substance: POMALIDOMIDE
     Indication: PLASMA CELL MYELOMA
     Dosage: 4 MILLIGRAM
     Route: 048
     Dates: start: 201808

REACTIONS (10)
  - Abdominal pain upper [Unknown]
  - Neck pain [Unknown]
  - Dizziness [Recovered/Resolved]
  - Gastrooesophageal reflux disease [Unknown]
  - Flatulence [Unknown]
  - Back pain [Recovered/Resolved]
  - Diarrhoea [Unknown]
  - Dyspnoea [Unknown]
  - Fatigue [Recovered/Resolved]
  - Malaise [Recovered/Resolved]
